FAERS Safety Report 5267720-0 (Version None)
Quarter: 2007Q1

REPORT INFORMATION
  Report Type: 
  Country: None (occurrence: None)
  Receive Date: 20070316
  Receipt Date: 20070305
  Transmission Date: 20070707
  Serious: Yes (Other)
  Sender: FDA-Public Use
  Company Number: US-PFIZER INC-2007005604

PATIENT
  Sex: Female
  Weight: 55.3 kg

DRUGS (3)
  1. DEPO-SUBQ PROVERA 104 [Suspect]
     Indication: CONTRACEPTION
     Route: 058
     Dates: start: 20050822, end: 20050822
  2. DEPO-SUBQ PROVERA 104 [Suspect]
     Route: 058
     Dates: start: 20060502, end: 20060502
  3. DEPO-SUBQ PROVERA 104 [Suspect]
     Route: 058
     Dates: start: 20060725, end: 20060725

REACTIONS (2)
  - INJECTION SITE ATROPHY [None]
  - SCAR [None]
